FAERS Safety Report 10277242 (Version 1)
Quarter: 2014Q3

REPORT INFORMATION
  Report Type: Spontaneous
  Country: US (occurrence: US)
  Receive Date: 20140703
  Receipt Date: 20140703
  Transmission Date: 20150326
  Serious: Yes (Hospitalization, Other)
  Sender: FDA-Public Use
  Company Number: US-PFIZER INC-2014179912

PATIENT
  Age: 61 Year
  Sex: Female
  Weight: 97.51 kg

DRUGS (5)
  1. LYRICA [Suspect]
     Active Substance: PREGABALIN
     Indication: PERIPHERAL SWELLING
     Dosage: 25 MG, 2X/DAY
     Route: 048
     Dates: start: 20140602, end: 201406
  2. BUTRANS [Concomitant]
     Active Substance: BUPRENORPHINE
     Indication: NECK PAIN
     Dosage: 20 MG, WEEKLY
     Route: 062
  3. LYRICA [Suspect]
     Active Substance: PREGABALIN
     Indication: MUSCLE SPASMS
  4. NORCO [Concomitant]
     Active Substance: ACETAMINOPHEN\HYDROCODONE BITARTRATE
     Indication: NECK PAIN
     Dosage: 10MG/325MG,
     Route: 048
  5. LYRICA [Suspect]
     Active Substance: PREGABALIN
     Indication: NEURALGIA
     Dosage: 50 MG, 3X/DAY
     Route: 048
     Dates: start: 20140602, end: 20140602

REACTIONS (8)
  - Blood potassium decreased [Unknown]
  - Fall [Unknown]
  - Drug intolerance [Unknown]
  - Peripheral swelling [Unknown]
  - Visual impairment [Not Recovered/Not Resolved]
  - Blood sodium decreased [Unknown]
  - Haemorrhage [Unknown]
  - Weight increased [Unknown]

NARRATIVE: CASE EVENT DATE: 201406
